FAERS Safety Report 11993661 (Version 2)
Quarter: 2016Q1

REPORT INFORMATION
  Report Type: Report from Study
  Country: US (occurrence: US)
  Receive Date: 20160203
  Receipt Date: 20160301
  Transmission Date: 20160526
  Serious: No
  Sender: FDA-Public Use
  Company Number: PHEH2016US002401

PATIENT
  Age: 47 Year
  Sex: Male

DRUGS (3)
  1. COSENTYX [Suspect]
     Active Substance: SECUKINUMAB
     Dosage: 300 MG, UNK (SPLIT 300 MG OVER 2 TO 3 DAYS)
     Route: 058
  2. COSENTYX [Suspect]
     Active Substance: SECUKINUMAB
     Indication: PSORIASIS
     Dosage: 300 MG, QMO
     Route: 058
     Dates: start: 20151007
  3. IRBESARTAN. [Concomitant]
     Active Substance: IRBESARTAN
     Indication: HYPERTENSION

REACTIONS (7)
  - Fatigue [Unknown]
  - Localised infection [Recovering/Resolving]
  - Influenza like illness [Not Recovered/Not Resolved]
  - Skin infection [Unknown]
  - Off label use [Unknown]
  - Lethargy [Unknown]
  - Skin injury [Unknown]

NARRATIVE: CASE EVENT DATE: 201511
